FAERS Safety Report 18432351 (Version 1)
Quarter: 2020Q4

REPORT INFORMATION
  Report Type: Spontaneous
  Country: US (occurrence: US)
  Receive Date: 20201027
  Receipt Date: 20201027
  Transmission Date: 20210114
  Serious: Yes (Hospitalization)
  Sender: FDA-Public Use
  Company Number: US-B.I. PHARMACEUTICALS,INC./RIDGEFIELD-2020-BI-056349

PATIENT
  Age: 55 Year
  Sex: Male

DRUGS (2)
  1. MOBIC [Suspect]
     Active Substance: MELOXICAM
     Indication: OSTEOARTHRITIS
  2. MOBIC [Suspect]
     Active Substance: MELOXICAM
     Indication: PAIN

REACTIONS (2)
  - Angina pectoris [Unknown]
  - Atrial fibrillation [Unknown]
